FAERS Safety Report 24228728 (Version 1)
Quarter: 2024Q3

REPORT INFORMATION
  Report Type: Spontaneous
  Country: US (occurrence: US)
  Receive Date: 20240820
  Receipt Date: 20240820
  Transmission Date: 20241016
  Serious: No
  Sender: SANOFI AVENTIS
  Company Number: US-SA-2024MK000008

PATIENT
  Age: 61 Year
  Sex: Male

DRUGS (3)
  1. AFREZZA [Suspect]
     Active Substance: INSULIN HUMAN
     Indication: Type 2 diabetes mellitus
     Dates: start: 2021
  2. AFREZZA [Suspect]
     Active Substance: INSULIN HUMAN
     Dates: start: 2021
  3. AFREZZA [Suspect]
     Active Substance: INSULIN HUMAN
     Dates: start: 2021

REACTIONS (3)
  - Blood glucose increased [Unknown]
  - Device use issue [Unknown]
  - Device occlusion [Unknown]

NARRATIVE: CASE EVENT DATE: 20240122
